FAERS Safety Report 5162179-6 (Version None)
Quarter: 2006Q4

REPORT INFORMATION
  Report Type: 
  Country: None (occurrence: None)
  Receive Date: 20061121
  Receipt Date: 20061106
  Transmission Date: 20070319
  Serious: Yes (Hospitalization)
  Sender: FDA-Public Use
  Company Number: 2006002116

PATIENT
  Age: 64 Year
  Sex: Male

DRUGS (3)
  1. TARCEVA [Suspect]
     Dosage: 150 MG (QD), ORAL
     Route: 048
  2. CLONAZEPAM [Concomitant]
  3. CORTICOSTEROID NOS (CORTICOSTEROID NOS) [Concomitant]

REACTIONS (6)
  - ASTHENIA [None]
  - GAIT DISTURBANCE [None]
  - MIGRAINE WITHOUT AURA [None]
  - MUSCULAR WEAKNESS [None]
  - NERVOUS SYSTEM DISORDER [None]
  - OBSESSIVE THOUGHTS [None]
